FAERS Safety Report 8275416-6 (Version None)
Quarter: 2012Q2

REPORT INFORMATION
  Report Type: 
  Country: None (occurrence: None)
  Receive Date: 20120411
  Receipt Date: 20120404
  Transmission Date: 20120825
  Serious: Yes (Life-Threatening, Other)
  Sender: FDA-Public Use
  Company Number: DE-ELI_LILLY_AND_COMPANY-DE201203003301

PATIENT
  Age: 66 Year
  Sex: Male
  Weight: 100 kg

DRUGS (6)
  1. LIPROLOG [Concomitant]
  2. METFORMIN HCL [Concomitant]
     Indication: DIABETES MELLITUS
     Dosage: UNK, UNKNOWN
     Route: 048
  3. ASPIRIN [Concomitant]
     Dosage: UNK, UNKNOWN
  4. BYDUREON [Suspect]
     Indication: TYPE 2 DIABETES MELLITUS
     Dosage: 2 MG, WEEKLY (1/W)
     Route: 058
     Dates: start: 20120205, end: 20120311
  5. EXFORGE HCT [Concomitant]
     Dosage: 1 DF, QD
  6. SIMVASTATIN [Concomitant]
     Dosage: UNK, UNKNOWN

REACTIONS (2)
  - RASH GENERALISED [None]
  - OFF LABEL USE [None]
